FAERS Safety Report 6793731-X (Version None)
Quarter: 2010Q2

REPORT INFORMATION
  Report Type: 
  Country: None (occurrence: None)
  Receive Date: 20100624
  Receipt Date: 20090409
  Transmission Date: 20101027
  Serious: No
  Sender: FDA-Public Use
  Company Number: US-PFIZER INC-2008153062

PATIENT
  Sex: Male
  Weight: 62.6 kg

DRUGS (6)
  1. XALATAN [Suspect]
     Indication: GLAUCOMA
     Dosage: 2 GTT, 1X/DAY
  2. XALEASE [Suspect]
     Dosage: UNK
  3. BENICAR [Concomitant]
     Dosage: UNK
  4. SINEMET [Concomitant]
     Dosage: UNK
  5. TUMS [Concomitant]
     Dosage: UNK
  6. TETRACYCLINE [Concomitant]
     Dosage: UNK

REACTIONS (3)
  - CIRCUMSTANCE OR INFORMATION CAPABLE OF LEADING TO MEDICATION ERROR [None]
  - DEVICE INEFFECTIVE [None]
  - INCORRECT DOSE ADMINISTERED [None]
